FAERS Safety Report 9750060 (Version 2)
Quarter: 2015Q3

REPORT INFORMATION
  Report Type: Spontaneous
  Country: DE (occurrence: DE)
  Receive Date: 20131212
  Receipt Date: 20150730
  Transmission Date: 20151125
  Serious: Yes (Other)
  Sender: FDA-Public Use
  Company Number: DE-GILEAD-DE-CVT-090763

PATIENT
  Age: 77 Year
  Sex: Male

DRUGS (10)
  1. RANEXA [Suspect]
     Active Substance: RANOLAZINE
     Indication: ANGINA PECTORIS
     Route: 048
     Dates: start: 20090721, end: 20090922
  2. SIMVASTATIN. [Concomitant]
     Active Substance: SIMVASTATIN
  3. ACETYLSALICYLIC ACID [Concomitant]
     Active Substance: ASPIRIN
  4. TORASEMIDE [Concomitant]
     Active Substance: TORSEMIDE
  5. EPOETIN NOS [Concomitant]
     Active Substance: ERYTHROPOIETIN
  6. VALSARTAN. [Concomitant]
     Active Substance: VALSARTAN
  7. BISOPROLOL                         /00802601/ [Concomitant]
     Active Substance: BISOPROLOL
  8. PENTAERYTHRITOL TETRANITRATE [Concomitant]
     Active Substance: PENTAERYTHRITOL TETRANITRATE
  9. CLOPIDOGREL                        /01220701/ [Concomitant]
  10. ALLOPURINOL. [Concomitant]
     Active Substance: ALLOPURINOL

REACTIONS (2)
  - Blood creatinine increased [Recovered/Resolved]
  - Renal failure [Recovered/Resolved]

NARRATIVE: CASE EVENT DATE: 20090826
